FAERS Safety Report 17137799 (Version 1)
Quarter: 2019Q4

REPORT INFORMATION
  Report Type: Spontaneous
  Country: US (occurrence: US)
  Receive Date: 20191120
  Receipt Date: 20191120
  Transmission Date: 20200122
  Serious: Yes (Hospitalization)
  Sender: FDA-Public Use
  Company Number: None

PATIENT
  Age: 23 Year
  Sex: Female

DRUGS (1)
  1. CIMZIA 200MG SYRINGE [Suspect]
     Active Substance: CERTOLIZUMAB PEGOL
     Indication: RHEUMATOID ARTHRITIS
     Dosage: ?          OTHER FREQUENCY:EVERY4WEEKS ;?
     Route: 058
     Dates: start: 20190405

REACTIONS (2)
  - Delivery [None]
  - Therapy cessation [None]

NARRATIVE: CASE EVENT DATE: 20191109
